FAERS Safety Report 24360522 (Version 1)
Quarter: 2024Q3

REPORT INFORMATION
  Report Type: Spontaneous
  Country: DE (occurrence: DE)
  Receive Date: 20240925
  Receipt Date: 20240925
  Transmission Date: 20241017
  Serious: Yes (Other)
  Sender: GLAND PHARMA
  Company Number: DE-GLANDPHARMA-DE-2024GLNLIT00772

PATIENT
  Age: 65 Year
  Sex: Female

DRUGS (5)
  1. GEMCITABINE [Suspect]
     Active Substance: GEMCITABINE
     Indication: Transitional cell carcinoma metastatic
     Route: 065
     Dates: start: 202111
  2. CISPLATIN [Suspect]
     Active Substance: CISPLATIN
     Indication: Transitional cell carcinoma metastatic
     Route: 065
     Dates: start: 202111
  3. AVELUMAB [Concomitant]
     Active Substance: AVELUMAB
     Dosage: MAINTENANCE THERAPY
     Route: 065
     Dates: start: 202203
  4. VINFLUNINE [Concomitant]
     Active Substance: VINFLUNINE
     Route: 065
  5. ENFORTUMAB VEDOTIN [Concomitant]
     Active Substance: ENFORTUMAB VEDOTIN
     Dosage: PALLIATIVE THIRD-LINE THERAPY
     Route: 065
     Dates: start: 202206

REACTIONS (2)
  - Polyneuropathy [Recovering/Resolving]
  - Product use in unapproved indication [Unknown]

NARRATIVE: CASE EVENT DATE: 20211101
